FAERS Safety Report 8015915-5 (Version None)
Quarter: 2011Q4

REPORT INFORMATION
  Report Type: 
  Country: None (occurrence: None)
  Receive Date: 20111230
  Receipt Date: 20111219
  Transmission Date: 20120403
  Serious: Yes (Hospitalization)
  Sender: FDA-Public Use
  Company Number: DE-ELI_LILLY_AND_COMPANY-DE201112005430

PATIENT
  Age: 52 Year
  Sex: Male
  Weight: 74 kg

DRUGS (12)
  1. PRASUGREL HYDROCHLORIDE [Suspect]
     Indication: ACUTE CORONARY SYNDROME
     Dosage: 60 MG, QD LOADING DOSE
     Dates: start: 20110925
  2. PRASUGREL HYDROCHLORIDE [Suspect]
     Dosage: 10 MG, QD MAINTENANCE DOSE
  3. PANTOPRAZOLE [Concomitant]
     Dosage: 40 MG, BID
  4. FLUTICASONE PROPIONATE/SALMETEROL [Concomitant]
     Dosage: 2 DF, QD
  5. NOVALGIN [Concomitant]
     Dosage: 30 DF, QID
  6. SPIRIVA [Concomitant]
     Dosage: 1 DF, QD
  7. HEPARIN [Concomitant]
  8. HALDOL [Concomitant]
     Dosage: 20 DF, TID
  9. RAMIPRIL [Concomitant]
     Dosage: 1.25 MG, QD
  10. ASPIRIN [Concomitant]
     Dosage: 100 MG, QD
  11. SIMVASTATIN [Concomitant]
     Dosage: 20 MG, QD
  12. ZOPICLON [Concomitant]
     Dosage: 7.5 MG, EACH EVENING

REACTIONS (2)
  - PETECHIAE [None]
  - HAEMATOMA [None]
